FAERS Safety Report 19435151 (Version 3)
Quarter: 2021Q3

REPORT INFORMATION
  Report Type: Report from Study
  Country: US (occurrence: US)
  Receive Date: 20210617
  Receipt Date: 20210826
  Transmission Date: 20211014
  Serious: Yes (Hospitalization, Other)
  Sender: FDA-Public Use
  Company Number: US-ACADIA PHARMACEUTICALS INC.-ACA-2021-PIM-001936

PATIENT
  Age: 48 Year
  Sex: Female

DRUGS (3)
  1. NUPLAZID [Suspect]
     Active Substance: PIMAVANSERIN TARTRATE
     Indication: HALLUCINATION
     Dosage: 34 MILLIGRAM, QD
     Route: 048
     Dates: start: 202106, end: 2021
  2. NUPLAZID [Suspect]
     Active Substance: PIMAVANSERIN TARTRATE
     Indication: PARKINSON^S DISEASE PSYCHOSIS
     Dosage: 34 MILLIGRAM, QD
     Route: 048
     Dates: start: 20210522, end: 2021
  3. NUPLAZID [Suspect]
     Active Substance: PIMAVANSERIN TARTRATE
     Indication: DELUSION

REACTIONS (6)
  - Road traffic accident [Not Recovered/Not Resolved]
  - Sternal fracture [Not Recovered/Not Resolved]
  - Product dose omission issue [Recovered/Resolved]
  - Upper limb fracture [Not Recovered/Not Resolved]
  - Hallucination, visual [Unknown]
  - Dizziness [Unknown]

NARRATIVE: CASE EVENT DATE: 202105
